FAERS Safety Report 20775816 (Version 1)
Quarter: 2022Q2

REPORT INFORMATION
  Report Type: Spontaneous
  Country: US (occurrence: US)
  Receive Date: 20220502
  Receipt Date: 20220502
  Transmission Date: 20220721
  Serious: No
  Sender: FDA-Public Use
  Company Number: US-ORGANON-O2204USA002074

PATIENT
  Age: 34 Year
  Sex: Female

DRUGS (3)
  1. PREGNYL [Suspect]
     Active Substance: CHORIOGONADOTROPIN ALFA
     Indication: Infertility
     Dosage: 10000 DOSAGE FORM
     Route: 030
     Dates: start: 20220325
  2. STERILE WATER [Suspect]
     Active Substance: WATER
     Dosage: UNK
  3. MENOPUR [Concomitant]
     Active Substance: FOLLITROPIN\LUTEINIZING HORMONE
     Dosage: UNK

REACTIONS (2)
  - Feeling abnormal [Unknown]
  - Abdominal distension [Unknown]

NARRATIVE: CASE EVENT DATE: 20220405
